FAERS Safety Report 8806598 (Version 2)
Quarter: 2012Q4

REPORT INFORMATION
  Report Type: 
  Country: US (occurrence: US)
  Receive Date: 20120925
  Receipt Date: 20121101
  Transmission Date: 20130627
  Serious: Yes (Other)
  Sender: FDA-Public Use
  Company Number: US-AMGEN-USASP2012059624

PATIENT
  Age: 83 Year
  Sex: Female

DRUGS (1)
  1. PROLIA [Suspect]
     Indication: OSTEOPOROSIS POSTMENOPAUSAL
     Dosage: UNK UNK, q6mo

REACTIONS (9)
  - Arthralgia [Recovered/Resolved]
  - Arthropathy [Unknown]
  - Osteoarthritis [Unknown]
  - Fall [Unknown]
  - Photopsia [Unknown]
  - Tooth fracture [Unknown]
  - Device breakage [Unknown]
  - Depressed level of consciousness [Not Recovered/Not Resolved]
  - Feeling abnormal [Not Recovered/Not Resolved]
